FAERS Safety Report 5590514-3 (Version None)
Quarter: 2008Q1

REPORT INFORMATION
  Report Type: 
  Country: None (occurrence: None)
  Receive Date: 20080114
  Receipt Date: 20071218
  Transmission Date: 20080703
  Serious: No
  Sender: FDA-Public Use
  Company Number: US-BOEHRINGER INGELHEIM PHARMACEUTICALS, INC.-2007-BP-26541BP

PATIENT
  Sex: Female

DRUGS (1)
  1. CATAPRES [Suspect]
     Indication: HYPERTENSION
     Route: 048

REACTIONS (2)
  - CHEST DISCOMFORT [None]
  - HYPERTENSION [None]
